FAERS Safety Report 9552803 (Version 1)
Quarter: 2013Q3

REPORT INFORMATION
  Report Type: Spontaneous
  Country: US (occurrence: None)
  Receive Date: 20130916
  Receipt Date: 20130916
  Transmission Date: 20140515
  Serious: Yes (Other)
  Sender: FDA-Public Use
  Company Number: 2013037955

PATIENT
  Age: 17 Year
  Sex: Male

DRUGS (4)
  1. FIX (COAGULATION FACTOR IX (HUMAN), MONOCLONAL ANTIBODY PURIFIED [Suspect]
     Indication: IMMUNE TOLERANCE INDUCTION
  2. FIX (COAGULATION FACTOR IX (HUMAN), MONOCLONAL ANTIBODY PURIFIED [Suspect]
     Indication: FACTOR IX DEFICIENCY
  3. AMINOCAPROIC ACID (AMINOCAPROIC ACID) [Concomitant]
  4. CYCLOPHOSPHAMIDE (CYCLOPHOSPHAMIDE) [Concomitant]

REACTIONS (4)
  - Haematoma [None]
  - Tooth abscess [None]
  - Post procedural haemorrhage [None]
  - Thrombolysis [None]
